FAERS Safety Report 4568892-3 (Version None)
Quarter: 2005Q1

REPORT INFORMATION
  Report Type: 
  Country: None (occurrence: None)
  Receive Date: 20050203
  Receipt Date: 20050120
  Transmission Date: 20050727
  Serious: Yes (Hospitalization)
  Sender: FDA-Public Use
  Company Number: US-JNJFOC-20050105879

PATIENT
  Sex: Male
  Weight: 44 kg

DRUGS (4)
  1. REMICADE [Suspect]
     Route: 042
  2. 5-ASA [Concomitant]
  3. ANTIBIOTICS [Concomitant]
  4. PREDNISONE [Concomitant]

REACTIONS (2)
  - HOSPITALISATION [None]
  - WEIGHT DECREASED [None]
